FAERS Safety Report 9467670 (Version 2)
Quarter: 2014Q1

REPORT INFORMATION
  Report Type: Spontaneous
  Country: FR (occurrence: FR)
  Receive Date: 20130821
  Receipt Date: 20140113
  Transmission Date: 20141002
  Serious: Yes (Hospitalization)
  Sender: FDA-Public Use
  Company Number: FR-ELI_LILLY_AND_COMPANY-FR201308004015

PATIENT
  Age: 63 Year
  Sex: Female

DRUGS (3)
  1. GEMZAR [Suspect]
     Indication: OVARIAN CANCER
     Dosage: UNK
     Route: 042
     Dates: start: 20130326
  2. AVASTIN [Suspect]
     Indication: OVARIAN CANCER
     Dosage: UNK
     Dates: start: 20130326
  3. CARBOPLATINE [Suspect]
     Indication: OVARIAN CANCER
     Dosage: UNK
     Route: 042
     Dates: start: 20130326

REACTIONS (2)
  - Female genital tract fistula [Recovered/Resolved with Sequelae]
  - Off label use [Recovered/Resolved]
